FAERS Safety Report 5386348-5 (Version None)
Quarter: 2007Q3

REPORT INFORMATION
  Report Type: 
  Country: None (occurrence: None)
  Receive Date: 20070705
  Receipt Date: 20070705
  Transmission Date: 20080115
  Serious: No
  Sender: FDA-Public Use
  Company Number: None

PATIENT
  Age: 52 Year
  Sex: Female
  Weight: 93.441 kg

DRUGS (1)
  1. CLIMARA [Suspect]
     Indication: HORMONE THERAPY
     Dosage: TOPICAL PATCH WEEKLY
     Route: 061
     Dates: start: 20030101

REACTIONS (1)
  - PHARMACEUTICAL PRODUCT COMPLAINT [None]
